FAERS Safety Report 10065087 (Version 1)
Quarter: 2014Q1

REPORT INFORMATION
  Report Type: Spontaneous
  Country: US (occurrence: None)
  Receive Date: 20140328
  Receipt Date: 20140328
  Transmission Date: 20141002
  Serious: No
  Sender: FDA-Public Use
  Company Number: CABO-13003816

PATIENT
  Age: 56 Year
  Sex: Male

DRUGS (11)
  1. COMETRIQ (CABOZANTINIB) [Suspect]
     Indication: METASTASES TO BONE MARROW
     Route: 048
     Dates: start: 20131219
  2. CALCIUM CITRATE [Concomitant]
  3. CULTURELLE (LACTOBACILLUS NOS) [Concomitant]
  4. GABAPENTIN [Concomitant]
  5. FENOFIBRATE [Concomitant]
  6. LEVOTHYROXINE [Concomitant]
  7. PANTOPRAZOLE [Concomitant]
  8. OMEGA 3 (FISH OIL) [Concomitant]
  9. LISINOPRIL [Concomitant]
  10. TYLEONOL (PARACETAMOL) [Concomitant]
  11. IRON [Concomitant]

REACTIONS (11)
  - Nasopharyngitis [None]
  - Fatigue [None]
  - Nausea [None]
  - Dizziness [None]
  - Flatulence [None]
  - Dysphonia [None]
  - Decreased appetite [None]
  - Back pain [None]
  - Arthralgia [None]
  - Glossodynia [None]
  - Off label use [None]
